FAERS Safety Report 16191931 (Version 1)
Quarter: 2019Q2

REPORT INFORMATION
  Report Type: Spontaneous
  Country: US (occurrence: US)
  Receive Date: 20190412
  Receipt Date: 20190412
  Transmission Date: 20190711
  Serious: No
  Sender: FDA-Public Use
  Company Number: US-ASTRAZENECA-2019SE44532

PATIENT
  Sex: Female

DRUGS (1)
  1. FASENRA [Suspect]
     Active Substance: BENRALIZUMAB
     Route: 058

REACTIONS (4)
  - Sneezing [Not Recovered/Not Resolved]
  - Sinus disorder [Unknown]
  - Feeling abnormal [Not Recovered/Not Resolved]
  - Wheezing [Not Recovered/Not Resolved]
